FAERS Safety Report 7013506-6 (Version None)
Quarter: 2010Q3

REPORT INFORMATION
  Report Type: 
  Country: None (occurrence: None)
  Receive Date: 20100924
  Receipt Date: 20100913
  Transmission Date: 20110219
  Serious: Yes (Hospitalization)
  Sender: FDA-Public Use
  Company Number: PHHO2010US14140

PATIENT
  Sex: Male

DRUGS (1)
  1. AFINITOR [Suspect]
     Indication: TRANSITIONAL CELL CARCINOMA
     Dosage: UNK
     Route: 048
     Dates: start: 20090501, end: 20090709

REACTIONS (6)
  - CONFUSIONAL STATE [None]
  - GOUT [None]
  - INFECTION [None]
  - NEUTROPHIL COUNT ABNORMAL [None]
  - PYREXIA [None]
  - VOMITING [None]
